FAERS Safety Report 4401629-7 (Version None)
Quarter: 2004Q3

REPORT INFORMATION
  Report Type: 
  Country: None (occurrence: None)
  Receive Date: 20040714
  Receipt Date: 20040701
  Transmission Date: 20050211
  Serious: Yes (Hospitalization, Other)
  Sender: FDA-Public Use
  Company Number: 2004044550

PATIENT
  Age: 80 Year
  Sex: Female
  Weight: 56.6996 kg

DRUGS (5)
  1. LIPITOR [Suspect]
     Indication: BLOOD CHOLESTEROL INCREASED
     Dosage: 10 MG (10 MG, 1 IN 1 D), ORAL
     Route: 048
     Dates: start: 20020101
  2. ALL OTHER THERAPEUTIC PRODUCTS (ALL OTHER THERAPEUTIC PRODUCTS) [Suspect]
     Indication: ILL-DEFINED DISORDER
  3. DILTIAZEM HYDROCHLORIDE [Concomitant]
  4. ESTROGENS (ESTROGENS) [Concomitant]
  5. LEVOTHYROXINE SODIUM [Concomitant]

REACTIONS (19)
  - ABDOMINAL DISTENSION [None]
  - ABDOMINAL PAIN UPPER [None]
  - ABDOMINAL STRANGULATED HERNIA [None]
  - ANXIETY [None]
  - ARTHRALGIA [None]
  - ARTHRITIS [None]
  - BLOOD PRESSURE INCREASED [None]
  - DEHYDRATION [None]
  - DEPRESSION [None]
  - DIFFICULTY IN WALKING [None]
  - DRUG EFFECT DECREASED [None]
  - HEARING IMPAIRED [None]
  - INGROWING NAIL [None]
  - INSOMNIA [None]
  - NEUROMA [None]
  - PAIN [None]
  - PAIN IN EXTREMITY [None]
  - PARAESTHESIA [None]
  - STAPHYLOCOCCAL INFECTION [None]
